FAERS Safety Report 20709212 (Version 18)
Quarter: 2023Q1

REPORT INFORMATION
  Report Type: Report from Study
  Country: CO (occurrence: CO)
  Receive Date: 20220414
  Receipt Date: 20230310
  Transmission Date: 20230418
  Serious: Yes (Disabling, Other)
  Sender: FDA-Public Use
  Company Number: CO-NOVARTISPH-NVSC2020CO360853

PATIENT
  Age: 50 Year
  Sex: Female

DRUGS (20)
  1. KISQALI [Suspect]
     Active Substance: RIBOCICLIB
     Indication: Hormone receptor positive HER2 negative breast cancer
     Dosage: 600 MG, QD
     Route: 048
     Dates: start: 202012
  2. KISQALI [Suspect]
     Active Substance: RIBOCICLIB
     Dosage: 400 MG, QD
     Route: 048
  3. KISQALI [Suspect]
     Active Substance: RIBOCICLIB
     Dosage: UNK
     Route: 048
     Dates: start: 20210920
  4. KISQALI [Suspect]
     Active Substance: RIBOCICLIB
     Dosage: 600 MG, QD
     Route: 048
     Dates: start: 202206
  5. KISQALI [Suspect]
     Active Substance: RIBOCICLIB
     Dosage: 400 MG, QD
     Route: 048
  6. KISQALI [Suspect]
     Active Substance: RIBOCICLIB
     Dosage: 600 MG, QD
     Route: 048
  7. KISQALI [Suspect]
     Active Substance: RIBOCICLIB
     Dosage: UNK, QD
     Route: 048
  8. KISQALI [Suspect]
     Active Substance: RIBOCICLIB
     Dosage: UNK
     Route: 048
  9. FEMARA [Suspect]
     Active Substance: LETROZOLE
     Indication: Breast cancer
     Dosage: 2.5 MG, QD
     Route: 048
     Dates: start: 202007
  10. FEMARA [Suspect]
     Active Substance: LETROZOLE
     Dosage: UNK
     Route: 048
     Dates: start: 20210921
  11. FEMARA [Suspect]
     Active Substance: LETROZOLE
     Dosage: UNK, QD
     Route: 048
  12. FEMARA [Suspect]
     Active Substance: LETROZOLE
     Dosage: UNK
     Route: 048
  13. ZOLEDRONIC ACID [Suspect]
     Active Substance: ZOLEDRONIC ACID
     Indication: Product used for unknown indication
     Dosage: 4 MG, QMO
     Route: 042
  14. ZOLEDRONIC ACID [Suspect]
     Active Substance: ZOLEDRONIC ACID
     Dosage: UNK, QMO
     Route: 042
     Dates: start: 202009
  15. CALCIUM CARBONATE [Concomitant]
     Active Substance: CALCIUM CARBONATE
     Indication: Supplementation therapy
     Dosage: UNK UNK, Q48H
     Route: 048
  16. OMEPRAZOLE [Concomitant]
     Active Substance: OMEPRAZOLE
     Indication: Gastritis
     Dosage: UNK, QD
     Route: 048
     Dates: start: 2020
  17. VITAMIN D3 [Concomitant]
     Active Substance: CHOLECALCIFEROL
     Indication: Product used for unknown indication
     Dosage: UNK
     Route: 065
  18. FOLIC ACID [Concomitant]
     Active Substance: FOLIC ACID
     Indication: Product used for unknown indication
     Dosage: UNK, QD
     Route: 048
     Dates: start: 2020
  19. CALCIUM [Concomitant]
     Active Substance: CALCIUM
     Indication: Product used for unknown indication
     Dosage: UNK
     Route: 065
  20. THIAMINE [Concomitant]
     Active Substance: THIAMINE
     Indication: Product used for unknown indication
     Dosage: 300 MG, QD (SINCE TWO MONTHS AGO)
     Route: 048

REACTIONS (82)
  - Dysstasia [Unknown]
  - Glaucoma [Unknown]
  - Breast mass [Unknown]
  - Arthropathy [Unknown]
  - Breast cancer recurrent [Unknown]
  - Rheumatic disorder [Unknown]
  - Sjogren^s syndrome [Unknown]
  - Cellulitis [Unknown]
  - Neutropenia [Unknown]
  - White blood cell count decreased [Unknown]
  - Decreased immune responsiveness [Unknown]
  - Hypersensitivity [Unknown]
  - Haemorrhoids [Unknown]
  - Loss of visual contrast sensitivity [Unknown]
  - Dry mouth [Unknown]
  - Haemoglobin decreased [Unknown]
  - Pruritus [Unknown]
  - Anaemia [Unknown]
  - Tremor [Unknown]
  - Confusional state [Unknown]
  - Spinal disorder [Unknown]
  - Sensitisation [Unknown]
  - Throat irritation [Unknown]
  - Frustration tolerance decreased [Unknown]
  - Burning sensation [Unknown]
  - Weight increased [Unknown]
  - Skin exfoliation [Unknown]
  - Urticaria [Recovering/Resolving]
  - Eczema [Unknown]
  - Dermatitis acneiform [Unknown]
  - Nipple disorder [Unknown]
  - Chondropathy [Unknown]
  - Synovial cyst [Unknown]
  - Limb discomfort [Unknown]
  - Acarodermatitis [Unknown]
  - Elbow deformity [Unknown]
  - Eye disorder [Unknown]
  - Eye swelling [Unknown]
  - Haematoma [Unknown]
  - Inflammation [Unknown]
  - Acne [Unknown]
  - Eyelash changes [Unknown]
  - Madarosis [Unknown]
  - Mutism [Unknown]
  - Unevaluable event [Unknown]
  - Deformity [Unknown]
  - Fracture [Unknown]
  - Cerebral disorder [Unknown]
  - Tinnitus [Unknown]
  - Somnolence [Unknown]
  - Spinal pain [Unknown]
  - Ulcer [Unknown]
  - Back pain [Unknown]
  - Visual impairment [Unknown]
  - General physical health deterioration [Unknown]
  - Pain [Unknown]
  - Blood cholesterol abnormal [Unknown]
  - Blood triglycerides abnormal [Unknown]
  - Immune system disorder [Unknown]
  - Nausea [Recovering/Resolving]
  - Migraine [Recovering/Resolving]
  - Vomiting [Unknown]
  - Laryngitis [Unknown]
  - Lymphocyte count decreased [Unknown]
  - Headache [Unknown]
  - Illness [Unknown]
  - Pyrexia [Unknown]
  - Cough [Unknown]
  - Rash [Unknown]
  - Dry skin [Unknown]
  - Dizziness [Unknown]
  - Drug ineffective [Unknown]
  - Arthralgia [Unknown]
  - Discouragement [Unknown]
  - Malaise [Unknown]
  - Pharyngitis [Unknown]
  - Oropharyngeal discomfort [Unknown]
  - Rhinorrhoea [Unknown]
  - Influenza [Unknown]
  - Decreased appetite [Unknown]
  - Product availability issue [Unknown]
  - Incorrect dose administered [Unknown]

NARRATIVE: CASE EVENT DATE: 20220120
